FAERS Safety Report 11071840 (Version 1)
Quarter: 2015Q2

REPORT INFORMATION
  Report Type: Spontaneous
  Country: IN (occurrence: None)
  Receive Date: 20150424
  Receipt Date: 20150424
  Transmission Date: 20150821
  Serious: Yes (Other)
  Sender: FDA-Public Use
  Company Number: 2015HINLIT0364

PATIENT
  Age: 70 Year
  Sex: Female

DRUGS (4)
  1. VALACYCLOVIR [Suspect]
     Active Substance: VALACYCLOVIR HYDROCHLORIDE
     Indication: PRODUCT USED FOR UNKNOWN INDICATION
     Route: 048
  2. PREDNISOLONE (PREDNISOLONE) [Concomitant]
     Active Substance: PREDNISOLONE
  3. TRAMADOL AND PARACETAMOL (TRAMADOL AND PARACETAMOL) [Concomitant]
  4. AMOXICILILN AND CLAVULANIC ACID (AMOXICILLIN AND CLAVULANIC ACID) [Concomitant]

REACTIONS (4)
  - Ear pain [None]
  - Synovial cyst [None]
  - Pyrexia [None]
  - Peripheral nerve lesion [None]
